FAERS Safety Report 7044053-3 (Version None)
Quarter: 2010Q4

REPORT INFORMATION
  Report Type: 
  Country: None (occurrence: None)
  Receive Date: 20101013
  Receipt Date: 20101006
  Transmission Date: 20110411
  Serious: Yes (Other)
  Sender: FDA-Public Use
  Company Number: AU-PFIZER INC-2010127684

PATIENT
  Age: 32 Year
  Sex: Female

DRUGS (1)
  1. CHAMPIX [Suspect]
     Dosage: 1 MG, 2X/DAY
     Route: 048

REACTIONS (2)
  - DEPRESSION [None]
  - SOCIAL AVOIDANT BEHAVIOUR [None]
